FAERS Safety Report 13573003 (Version 1)
Quarter: 2017Q2

REPORT INFORMATION
  Report Type: Spontaneous
  Country: US (occurrence: US)
  Receive Date: 20170523
  Receipt Date: 20170523
  Transmission Date: 20170830
  Serious: No
  Sender: FDA-Public Use
  Company Number: US-HORIZON-PEN-0234-2017

PATIENT
  Age: 72 Year
  Sex: Female

DRUGS (5)
  1. SIMVASTATIN. [Concomitant]
     Active Substance: SIMVASTATIN
  2. PENNSAID [Suspect]
     Active Substance: DICLOFENAC SODIUM
     Indication: ARTHRITIS
     Dosage: 1 DROP BID
     Dates: start: 201605
  3. BACITRACIN. [Concomitant]
     Active Substance: BACITRACIN
  4. CELEBREX [Concomitant]
     Active Substance: CELECOXIB
  5. CLONAZEPAM. [Concomitant]
     Active Substance: CLONAZEPAM

REACTIONS (11)
  - Skin disorder [Unknown]
  - Skin exfoliation [Unknown]
  - Skin discolouration [Unknown]
  - Skin haemorrhage [Unknown]
  - Intentional product misuse [Unknown]
  - Skin burning sensation [Unknown]
  - Wrong technique in product usage process [Unknown]
  - Pruritus [Unknown]
  - Skin atrophy [Unknown]
  - Off label use [Unknown]
  - Skin infection [Unknown]
